FAERS Safety Report 9306042 (Version 2)
Quarter: 2013Q3

REPORT INFORMATION
  Report Type: Spontaneous
  Country: US (occurrence: US)
  Receive Date: 20130523
  Receipt Date: 20130705
  Transmission Date: 20140515
  Serious: No
  Sender: FDA-Public Use
  Company Number: US-PFIZER INC-2013155752

PATIENT
  Age: 79 Year
  Sex: Female

DRUGS (4)
  1. LEVOXYL [Suspect]
     Indication: THYROID HORMONE REPLACEMENT THERAPY
     Dosage: UNK, 1X/DAY
     Route: 048
     Dates: start: 2003
  2. LEVOXYL [Suspect]
     Indication: HYPOTHYROIDISM
     Dosage: 112 UG, UNK
     Dates: start: 20080218
  3. LEVOXYL [Suspect]
     Dosage: 100 UG, 1X/DAY
     Route: 048
  4. LEVOXYL [Suspect]
     Dosage: UNK
     Route: 048
     Dates: end: 20130517

REACTIONS (6)
  - Anxiety [Recovering/Resolving]
  - Stress [Recovering/Resolving]
  - Vein disorder [Recovering/Resolving]
  - Weight decreased [Recovering/Resolving]
  - Alopecia [Recovering/Resolving]
  - Malaise [Recovering/Resolving]
